FAERS Safety Report 13342773 (Version 1)
Quarter: 2017Q1

REPORT INFORMATION
  Report Type: Spontaneous
  Country: FR (occurrence: FR)
  Receive Date: 20170316
  Receipt Date: 20170316
  Transmission Date: 20170428
  Serious: Yes (Hospitalization)
  Sender: FDA-Public Use
  Company Number: FR-PFIZER INC-2017109928

PATIENT
  Age: 64 Year
  Sex: Female

DRUGS (8)
  1. DIFFU K [Concomitant]
     Active Substance: POTASSIUM CHLORIDE
     Dosage: 1 DF, DAILY
  2. CARDENSIEL [Concomitant]
     Active Substance: BISOPROLOL FUMARATE
     Dosage: 3.75 MG, DAILY
  3. PENTASA [Concomitant]
     Active Substance: MESALAMINE
     Dosage: 1 G, 2X/DAY
  4. CEFOTAXIME [Suspect]
     Active Substance: CEFOTAXIME SODIUM
     Indication: INFECTION
     Dosage: 4 G, 3X/DAY
     Route: 040
     Dates: start: 20170216, end: 20170222
  5. LASILIX /00032601/ [Concomitant]
     Active Substance: FUROSEMIDE
     Dosage: 40 MG, DAILY
  6. STRESAM [Concomitant]
     Active Substance: ETIFOXINE
     Dosage: 2 DF, DAILY
  7. XANAX [Suspect]
     Active Substance: ALPRAZOLAM
     Indication: ANXIETY
     Dosage: 0.25 MG, DAILY
     Route: 048
     Dates: start: 20170216, end: 20170222
  8. PREVISCAN /00789001/ [Concomitant]
     Active Substance: FLUINDIONE
     Dosage: 1 DF, DAILY

REACTIONS (1)
  - Rash [Recovering/Resolving]

NARRATIVE: CASE EVENT DATE: 20170221
